FAERS Safety Report 18755500 (Version 2)
Quarter: 2021Q1

REPORT INFORMATION
  Report Type: Spontaneous
  Country: EG (occurrence: EG)
  Receive Date: 20210119
  Receipt Date: 20210128
  Transmission Date: 20210419
  Serious: Yes (Hospitalization, Other)
  Sender: FDA-Public Use
  Company Number: EG-NOVOPROD-780843

PATIENT
  Age: 670 Month
  Sex: Male
  Weight: 80 kg

DRUGS (4)
  1. MIXTARD 30 HM PENFILL [Suspect]
     Active Substance: INSULIN HUMAN
     Indication: TYPE 1 DIABETES MELLITUS
     Dosage: 40 IU, QD (STARTED 9 YEARS AGO)
     Route: 058
     Dates: end: 202009
  2. EGYPRO [Concomitant]
     Indication: HYPERTENSION
     Dosage: 1DF, QD
     Route: 048
     Dates: start: 20190624
  3. MIXTARD 30 HM PENFILL [Suspect]
     Active Substance: INSULIN HUMAN
     Dosage: 50 IU, QD
     Route: 058
     Dates: start: 202009
  4. MIXTARD 30 HM PENFILL [Suspect]
     Active Substance: INSULIN HUMAN
     Dosage: 60 IU, QD
     Route: 058
     Dates: start: 202009

REACTIONS (1)
  - Coronary artery insufficiency [Recovered/Resolved]

NARRATIVE: CASE EVENT DATE: 20190614
